FAERS Safety Report 16966423 (Version 1)
Quarter: 2019Q4

REPORT INFORMATION
  Report Type: Spontaneous
  Country: US (occurrence: US)
  Receive Date: 20190910
  Receipt Date: 20190910
  Transmission Date: 20200122
  Serious: No
  Sender: FDA-Public Use
  Company Number: None

PATIENT
  Sex: Male

DRUGS (6)
  1. OXYCODONE [Concomitant]
     Active Substance: OXYCODONE
  2. VANCOMYCIN HCL [Suspect]
     Active Substance: VANCOMYCIN HYDROCHLORIDE
     Indication: WOUND INFECTION
     Route: 042
     Dates: start: 20190802, end: 20190828
  3. GABAPENTIN. [Concomitant]
     Active Substance: GABAPENTIN
  4. OXYCONTIN [Concomitant]
     Active Substance: OXYCODONE HYDROCHLORIDE
  5. VANCOMYCIN HCL [Suspect]
     Active Substance: VANCOMYCIN HYDROCHLORIDE
     Indication: SPINAL CORD INFECTION
     Route: 042
     Dates: start: 20190802, end: 20190828
  6. FLOMAX [Concomitant]
     Active Substance: TAMSULOSIN HYDROCHLORIDE

REACTIONS (4)
  - White blood cell count abnormal [None]
  - Haemoglobin decreased [None]
  - Febrile neutropenia [None]
  - Red blood cell sedimentation rate increased [None]
